FAERS Safety Report 4627946-3 (Version None)
Quarter: 2005Q2

REPORT INFORMATION
  Report Type: 
  Country: None (occurrence: None)
  Receive Date: 20050401
  Receipt Date: 20050324
  Transmission Date: 20051028
  Serious: Yes (Hospitalization, Other)
  Sender: FDA-Public Use
  Company Number: 2005016002

PATIENT
  Age: 80 Year
  Sex: Male
  Weight: 80.7403 kg

DRUGS (3)
  1. CELEBREX [Suspect]
     Indication: ARTHRITIS
     Dosage: ORAL
     Route: 048
     Dates: start: 20010101
  2. WARFARIN SODIUM [Suspect]
     Indication: THROMBOSIS
     Dosage: ORAL
     Route: 048
     Dates: start: 20050101, end: 20050101
  3. LOTREL [Concomitant]

REACTIONS (3)
  - HAEMORRHAGE [None]
  - OEDEMA PERIPHERAL [None]
  - PULMONARY THROMBOSIS [None]
